FAERS Safety Report 17233250 (Version 2)
Quarter: 2020Q3

REPORT INFORMATION
  Report Type: Spontaneous
  Country: US (occurrence: US)
  Receive Date: 20200104
  Receipt Date: 20200728
  Transmission Date: 20201102
  Serious: Yes (Hospitalization)
  Sender: FDA-Public Use
  Company Number: US-ROCHE-2514580

PATIENT
  Age: 73 Year
  Sex: Male

DRUGS (1)
  1. ESBRIET [Suspect]
     Active Substance: PIRFENIDONE
     Indication: IDIOPATHIC PULMONARY FIBROSIS
     Route: 048
     Dates: start: 20180518

REACTIONS (3)
  - Nasal obstruction [Unknown]
  - Epistaxis [Unknown]
  - Epistaxis [Unknown]

NARRATIVE: CASE EVENT DATE: 20191223
